FAERS Safety Report 13055939 (Version 1)
Quarter: 2016Q4

REPORT INFORMATION
  Report Type: Spontaneous
  Country: JP (occurrence: JP)
  Receive Date: 20161222
  Receipt Date: 20161222
  Transmission Date: 20170207
  Serious: Yes (Other)
  Sender: FDA-Public Use
  Company Number: JP-PFIZER INC-2016592975

PATIENT
  Sex: Female

DRUGS (3)
  1. GLACTIV [Concomitant]
     Active Substance: SITAGLIPTIN
     Dosage: UNK
  2. SELBEX [Concomitant]
     Active Substance: TEPRENONE
     Dosage: UNK
  3. LIPITOR [Suspect]
     Active Substance: ATORVASTATIN CALCIUM
     Dosage: 10 MG, 1X/DAY
     Route: 048

REACTIONS (3)
  - Dysstasia [Unknown]
  - Arthralgia [Unknown]
  - Muscle spasms [Unknown]
